FAERS Safety Report 20257524 (Version 1)
Quarter: 2021Q4

REPORT INFORMATION
  Report Type: Spontaneous
  Country: GB (occurrence: GB)
  Receive Date: 20211230
  Receipt Date: 20211230
  Transmission Date: 20220303
  Serious: Yes (Hospitalization, Other)
  Sender: FDA-Public Use
  Company Number: GB-JNJFOC-20211238789

PATIENT
  Sex: Male

DRUGS (9)
  1. MACITENTAN [Suspect]
     Active Substance: MACITENTAN
     Indication: Pulmonary arterial hypertension
     Route: 048
  2. SELEXIPAG [Suspect]
     Active Substance: SELEXIPAG
     Indication: Pulmonary arterial hypertension
     Route: 048
  3. SELEXIPAG [Suspect]
     Active Substance: SELEXIPAG
     Route: 048
  4. TADALAFIL [Suspect]
     Active Substance: TADALAFIL
  5. RIFAXIMIN [Concomitant]
     Active Substance: RIFAXIMIN
  6. BISOPROLOL [Concomitant]
     Active Substance: BISOPROLOL
  7. RAMIPRIL [Concomitant]
     Active Substance: RAMIPRIL
  8. SPIRONOLACTONE [Concomitant]
     Active Substance: SPIRONOLACTONE
  9. BUMETANIDE [Concomitant]
     Active Substance: BUMETANIDE

REACTIONS (5)
  - Cardiac failure [Unknown]
  - Hepatic encephalopathy [Unknown]
  - Hepatic arteriovenous malformation [Unknown]
  - Iron deficiency anaemia [Unknown]
  - Epistaxis [Unknown]
